FAERS Safety Report 4681913-2 (Version None)
Quarter: 2005Q2

REPORT INFORMATION
  Report Type: 
  Country: None (occurrence: None)
  Receive Date: 20050602
  Receipt Date: 20050520
  Transmission Date: 20051028
  Serious: Yes (Other)
  Sender: FDA-Public Use
  Company Number: 2005077978

PATIENT
  Age: 47 Year
  Sex: Female
  Weight: 77 kg

DRUGS (1)
  1. BEXTRA [Suspect]
     Indication: LIGAMENT INJURY
     Dosage: 20 MG (10 MG, 1 IN 1 AS NECESSARY), ORAL
     Route: 048
     Dates: start: 20030101, end: 20040101

REACTIONS (5)
  - ALOPECIA [None]
  - DYSPEPSIA [None]
  - JOINT LOCK [None]
  - MUSCLE SPASMS [None]
  - STOMACH DISCOMFORT [None]
